FAERS Safety Report 6331561-3 (Version None)
Quarter: 2009Q3

REPORT INFORMATION
  Report Type: 
  Country: None (occurrence: None)
  Receive Date: 20090827
  Receipt Date: 20090820
  Transmission Date: 20100115
  Serious: Yes (Other)
  Sender: FDA-Public Use
  Company Number: CA-AMGEN-US361101

PATIENT
  Age: 67 Year
  Sex: Male

DRUGS (3)
  1. ARANESP [Suspect]
     Indication: DRUG USE FOR UNKNOWN INDICATION
     Route: 058
  2. ARANESP [Suspect]
     Route: 058
  3. EPREX [Suspect]

REACTIONS (4)
  - HEADACHE [None]
  - HYPERTENSION [None]
  - VISION BLURRED [None]
  - VITH NERVE PARALYSIS [None]
